FAERS Safety Report 8304506-4 (Version None)
Quarter: 2012Q2

REPORT INFORMATION
  Report Type: 
  Country: None (occurrence: None)
  Receive Date: 20120423
  Receipt Date: 20120412
  Transmission Date: 20120825
  Serious: Yes (Death, Hospitalization)
  Sender: FDA-Public Use
  Company Number: US-GLAXOSMITHKLINE-A0794440A

PATIENT
  Age: 80 Year
  Sex: Male
  Weight: 72.7 kg

DRUGS (7)
  1. CRESTOR [Concomitant]
  2. GLIMEPIRIDE [Concomitant]
  3. GLIPIZIDE [Concomitant]
  4. GEMFIBROZIL [Concomitant]
  5. AVANDIA [Suspect]
     Indication: DIABETES MELLITUS
     Dosage: 4MG TWICE PER DAY
     Route: 048
     Dates: start: 20060301, end: 20061101
  6. ENALAPRIL [Concomitant]
  7. FLOMAX [Concomitant]

REACTIONS (8)
  - CEREBROVASCULAR ACCIDENT [None]
  - RESPIRATORY ACIDOSIS [None]
  - RENAL FAILURE [None]
  - MYOCARDIAL INFARCTION [None]
  - GENERALISED OEDEMA [None]
  - CARDIAC FAILURE CONGESTIVE [None]
  - CORONARY ARTERY DISEASE [None]
  - CONDITION AGGRAVATED [None]
